FAERS Safety Report 23183674 (Version 1)
Quarter: 2023Q4

REPORT INFORMATION
  Report Type: Other
  Country: None (occurrence: MX)
  Receive Date: 20231114
  Receipt Date: 20231114
  Transmission Date: 20240110
  Serious: Yes (Life-Threatening, Hospitalization)
  Sender: FDA-Public Use
  Company Number: MX-B.Braun Medical Inc.-2148221

PATIENT
  Age: 60 Year
  Sex: Male

DRUGS (11)
  1. CEFTAZIDIME AND DEXTROSE [Suspect]
     Active Substance: CEFTAZIDIME
     Indication: Klebsiella infection
  2. MEROPENEM [Suspect]
     Active Substance: MEROPENEM
  3. CEFTAROLINE [Suspect]
     Active Substance: CEFTAROLINE
  4. IMIPENEM [Suspect]
     Active Substance: IMIPENEM
  5. LINEZOLID [Suspect]
     Active Substance: LINEZOLID
  6. SULFAMETHOXAZOLE\TRIMETHOPRIM [Suspect]
     Active Substance: SULFAMETHOXAZOLE\TRIMETHOPRIM
  7. ANIDULAFUNGIN [Suspect]
     Active Substance: ANIDULAFUNGIN
  8. AMPHOTERICIN B [Suspect]
     Active Substance: AMPHOTERICIN B
  9. LEVOFLOXACIN [Suspect]
     Active Substance: LEVOFLOXACIN
  10. HEPARIN [Concomitant]
     Active Substance: HEPARIN SODIUM
  11. 20% human albumin solution [Concomitant]

REACTIONS (1)
  - Drug ineffective [None]
